FAERS Safety Report 4687165-1 (Version None)
Quarter: 2005Q2

REPORT INFORMATION
  Report Type: 
  Country: None (occurrence: None)
  Receive Date: 20050607
  Receipt Date: 20050524
  Transmission Date: 20051028
  Serious: Yes (Hospitalization, Other)
  Sender: FDA-Public Use
  Company Number: US_0501110053

PATIENT
  Age: 9 Year
  Sex: Male
  Weight: 40 kg

DRUGS (4)
  1. ATOMOXETINE HYDROCHLORIDE [Suspect]
     Indication: ATTENTION DEFICIT/HYPERACTIVITY DISORDER
     Dosage: 20 MG/2 DAY
     Dates: start: 20041203, end: 20050108
  2. DEPAKOTE (VALPROATE SEMISODIUM)C [Concomitant]
  3. GEODON [Concomitant]
  4. ZOLOFT [Concomitant]

REACTIONS (6)
  - AGGRESSION [None]
  - HALLUCINATION, AUDITORY [None]
  - INSOMNIA [None]
  - IRRITABILITY [None]
  - OPPOSITIONAL DEFIANT DISORDER [None]
  - PHYSICAL ASSAULT [None]
